FAERS Safety Report 6935908-6 (Version None)
Quarter: 2010Q3

REPORT INFORMATION
  Report Type: 
  Country: None (occurrence: None)
  Receive Date: 20100823
  Receipt Date: 20100722
  Transmission Date: 20110219
  Serious: No
  Sender: FDA-Public Use
  Company Number: US-BAYER-201018738BCC

PATIENT
  Sex: Female

DRUGS (1)
  1. ALEVE (CAPLET) [Suspect]
     Indication: PYREXIA
     Dosage: TOOK AN UNKNOWN AMONT ON 21-JUL-2010 AND 440MG ON 22-JUL-2010 / BOTTLE COUNT 24S
     Route: 048
     Dates: start: 20100721

REACTIONS (1)
  - PYREXIA [None]
